FAERS Safety Report 10477313 (Version 2)
Quarter: 2015Q1

REPORT INFORMATION
  Report Type: Report from Study
  Country: US (occurrence: US)
  Receive Date: 20140926
  Receipt Date: 20150327
  Transmission Date: 20150720
  Serious: Yes (Other)
  Sender: FDA-Public Use
  Company Number: US-ROCHE-1465027

PATIENT
  Sex: Male

DRUGS (5)
  1. MULTAQ [Concomitant]
     Active Substance: DRONEDARONE
     Indication: ATRIAL FIBRILLATION
     Route: 065
  2. PLAVIX [Concomitant]
     Active Substance: CLOPIDOGREL BISULFATE
     Route: 065
  3. CEFTRIAXONE. [Suspect]
     Active Substance: CEFTRIAXONE
     Indication: DERMATITIS
     Route: 065
  4. WELCHOL [Concomitant]
     Active Substance: COLESEVELAM HYDROCHLORIDE
     Indication: BLOOD CHOLESTEROL
     Route: 065
  5. HUMIRA [Suspect]
     Active Substance: ADALIMUMAB
     Indication: COLITIS ULCERATIVE
     Dosage: SOLUTION FOR INJECTION
     Route: 065
     Dates: start: 2010

REACTIONS (11)
  - Cataract [Unknown]
  - Feeling hot [Unknown]
  - Pyrexia [Unknown]
  - Rash [Unknown]
  - Rash macular [Unknown]
  - Headache [Unknown]
  - Chills [Unknown]
  - Hot flush [Unknown]
  - Antibody test positive [Unknown]
  - Arthropod bite [Unknown]
  - Local swelling [Unknown]

NARRATIVE: CASE EVENT DATE: 2011
